FAERS Safety Report 6243928-2 (Version None)
Quarter: 2009Q2

REPORT INFORMATION
  Report Type: 
  Country: None (occurrence: None)
  Receive Date: 20090624
  Receipt Date: 20090615
  Transmission Date: 20091009
  Serious: Yes (Other)
  Sender: FDA-Public Use
  Company Number: US-AMGEN-QUU351801

PATIENT
  Sex: Female

DRUGS (1)
  1. ENBREL [Suspect]
     Indication: ANKYLOSING SPONDYLITIS
     Route: 058
     Dates: start: 20080919

REACTIONS (5)
  - DIPLOPIA [None]
  - LOCAL SWELLING [None]
  - MIGRAINE [None]
  - SCLERITIS [None]
  - VISUAL IMPAIRMENT [None]
